FAERS Safety Report 9942319 (Version 2)
Quarter: 2014Q1

REPORT INFORMATION
  Report Type: Spontaneous
  Country: JP (occurrence: JP)
  Receive Date: 20140303
  Receipt Date: 20140317
  Transmission Date: 20141002
  Serious: Yes (Other)
  Sender: FDA-Public Use
  Company Number: PHJP2014JP000577

PATIENT
  Sex: 0

DRUGS (1)
  1. TEGRETOL TAB 200MG [Suspect]
     Dosage: UNK UKN, UNK
     Route: 048

REACTIONS (2)
  - Encephalopathy [Unknown]
  - Herpes virus infection [Unknown]
